FAERS Safety Report 7978226-X (Version None)
Quarter: 2011Q4

REPORT INFORMATION
  Report Type: 
  Country: None (occurrence: None)
  Receive Date: 20111208
  Receipt Date: 20111129
  Transmission Date: 20120403
  Serious: Yes (Hospitalization)
  Sender: FDA-Public Use
  Company Number: 2011SP056334

PATIENT
  Age: 43 Year
  Sex: Female
  Weight: 74.3 kg

DRUGS (5)
  1. DIAZEPAM [Suspect]
     Indication: RESTLESSNESS
     Dosage: 5 MG;PRN;PO
     Route: 048
     Dates: start: 20110918, end: 20110926
  2. SYCREST (ASENAPINE /05706901/) [Suspect]
     Indication: BIPOLAR DISORDER
     Dosage: 5 MG;QD;PO ; 10 MG;QD;PO
     Route: 048
     Dates: start: 20110919, end: 20110924
  3. SYCREST (ASENAPINE /05706901/) [Suspect]
     Indication: MANIA
     Dosage: 5 MG;QD;PO ; 10 MG;QD;PO
     Route: 048
     Dates: start: 20110919, end: 20110924
  4. SYCREST (ASENAPINE /05706901/) [Suspect]
     Indication: BIPOLAR DISORDER
     Dosage: 5 MG;QD;PO ; 10 MG;QD;PO
     Route: 048
     Dates: start: 20110925, end: 20110926
  5. SYCREST (ASENAPINE /05706901/) [Suspect]
     Indication: MANIA
     Dosage: 5 MG;QD;PO ; 10 MG;QD;PO
     Route: 048
     Dates: start: 20110925, end: 20110926

REACTIONS (5)
  - DELIRIUM [None]
  - BLOOD ALKALINE PHOSPHATASE INCREASED [None]
  - PLATELET COUNT INCREASED [None]
  - ANXIETY [None]
  - URINARY TRACT INFECTION [None]
